FAERS Safety Report 5330265-3 (Version None)
Quarter: 2007Q2

REPORT INFORMATION
  Report Type: 
  Country: None (occurrence: None)
  Receive Date: 20070521
  Receipt Date: 20070507
  Transmission Date: 20071010
  Serious: Yes (Hospitalization)
  Sender: FDA-Public Use
  Company Number: US-ELI_LILLY_AND_COMPANY-US200705002025

PATIENT
  Age: 59 Year
  Sex: Male

DRUGS (13)
  1. HUMULIN R [Suspect]
     Indication: DIABETES MELLITUS
     Dates: start: 20040101
  2. FUROSEMIDE [Concomitant]
  3. DIOVAN [Concomitant]
  4. GLUCOPHAGE [Concomitant]
  5. INDAPAMIDE [Concomitant]
  6. ZOCOR [Concomitant]
  7. ASPIRIN [Concomitant]
  8. DOCUSATE SODIUM [Concomitant]
  9. METOPROLOL SUCCINATE [Concomitant]
  10. FELODIPINE [Concomitant]
  11. SIMILAC [Concomitant]
  12. LANTUS [Concomitant]
  13. HUMALOG [Suspect]
     Indication: DIABETES MELLITUS

REACTIONS (5)
  - ATRIAL FIBRILLATION [None]
  - BACK PAIN [None]
  - BLOOD GLUCOSE FLUCTUATION [None]
  - DRUG INEFFECTIVE [None]
  - LOSS OF CONSCIOUSNESS [None]
